FAERS Safety Report 4899608-9 (Version None)
Quarter: 2006Q1

REPORT INFORMATION
  Report Type: 
  Country: None (occurrence: None)
  Receive Date: 20060118
  Receipt Date: 20050804
  Transmission Date: 20060701
  Serious: No
  Sender: FDA-Public Use
  Company Number: 2005001522

PATIENT
  Age: 55 Year
  Sex: Male

DRUGS (4)
  1. TARCEVA [Suspect]
     Indication: LUNG NEOPLASM MALIGNANT
     Dosage: 150 MG (QD), ORAL
     Route: 048
     Dates: start: 20050720
  2. TENORMIN [Concomitant]
  3. ASPIRIN [Concomitant]
  4. VICODIN [Concomitant]

REACTIONS (2)
  - ABDOMINAL DISTENSION [None]
  - RASH PAPULAR [None]
